FAERS Safety Report 9923600 (Version 2)
Quarter: 2014Q1

REPORT INFORMATION
  Report Type: Spontaneous
  Country: US (occurrence: US)
  Receive Date: 20140225
  Receipt Date: 20140225
  Transmission Date: 20141002
  Serious: Yes (Other)
  Sender: FDA-Public Use
  Company Number: US-GE HEALTHCARE MEDICAL DIAGNOSTICS-OSCN-PR-0806S-0326

PATIENT
  Sex: Female

DRUGS (16)
  1. OMNISCAN [Suspect]
     Indication: PRODUCT USED FOR UNKNOWN INDICATION
     Route: 042
     Dates: start: 20010326, end: 20010326
  2. OMNISCAN [Suspect]
     Indication: PRODUCT USED FOR UNKNOWN INDICATION
     Route: 042
     Dates: start: 20050110, end: 20050110
  3. OMNISCAN [Suspect]
     Indication: PERIPHERAL ARTERY STENOSIS
     Route: 042
     Dates: start: 20060321, end: 20060321
  4. PROHANCE [Suspect]
     Indication: HYPOAESTHESIA
     Route: 042
     Dates: start: 20001004, end: 20001004
  5. AMIODARONE [Concomitant]
     Dates: start: 20020415
  6. COUMADIN [Concomitant]
     Dates: start: 20020415
  7. PLETAL [Concomitant]
     Dates: start: 20050923
  8. PREDNISONE [Concomitant]
     Dates: start: 20060613
  9. VICODIN [Concomitant]
     Dates: start: 20060613
  10. ALLOPURINOL [Concomitant]
     Dates: start: 20060626
  11. AQUAPHOR [Concomitant]
     Route: 061
     Dates: start: 20061122
  12. HYDROXYZINE [Concomitant]
     Dates: start: 20061122
  13. TACLONEX [Concomitant]
     Dates: start: 20061206
  14. AVEENO [Concomitant]
     Dates: start: 20061206
  15. LAMISIL [Concomitant]
     Dates: start: 20071026
  16. BETAMETHASONE [Concomitant]
     Dates: start: 20071026

REACTIONS (1)
  - Nephrogenic systemic fibrosis [Not Recovered/Not Resolved]
